FAERS Safety Report 18169151 (Version 3)
Quarter: 2020Q3

REPORT INFORMATION
  Report Type: Spontaneous
  Country: US (occurrence: US)
  Receive Date: 20200819
  Receipt Date: 20200919
  Transmission Date: 20201103
  Serious: No
  Sender: FDA-Public Use
  Company Number: US-UNITED THERAPEUTICS-UNT-2020-012148

PATIENT
  Age: 57 Year
  Sex: Female
  Weight: 77.1 kg

DRUGS (7)
  1. TYVASO [Suspect]
     Active Substance: TREPROSTINIL
     Indication: PULMONARY ARTERIAL HYPERTENSION
     Dosage: UNK
     Dates: start: 20200727
  2. TYVASO [Suspect]
     Active Substance: TREPROSTINIL
     Dosage: 60?120 ?G, QID
  3. TYVASO [Suspect]
     Active Substance: TREPROSTINIL
     Dosage: 60?120 ?G, QID
  4. TYVASO [Suspect]
     Active Substance: TREPROSTINIL
     Dosage: 42 ?G
  5. TYVASO [Suspect]
     Active Substance: TREPROSTINIL
     Dosage: 18?54 ?G, QID
  6. TYVASO [Suspect]
     Active Substance: TREPROSTINIL
     Dosage: 54 ?G
  7. LETAIRIS [Concomitant]
     Active Substance: AMBRISENTAN
     Indication: PRODUCT USED FOR UNKNOWN INDICATION
     Dosage: UNK
     Route: 065

REACTIONS (13)
  - Asthenia [Unknown]
  - Feeling hot [Unknown]
  - Renal pain [Unknown]
  - Headache [Unknown]
  - Fatigue [Unknown]
  - Blood pressure increased [Unknown]
  - Cough [Unknown]
  - Diarrhoea [Unknown]
  - Feeling cold [Unknown]
  - Nausea [Unknown]
  - Off label use [Unknown]
  - Dizziness [Unknown]
  - Product dose omission issue [Unknown]

NARRATIVE: CASE EVENT DATE: 2020
